FAERS Safety Report 5170599-9 (Version None)
Quarter: 2006Q4

REPORT INFORMATION
  Report Type: 
  Country: None (occurrence: None)
  Receive Date: 20061205
  Receipt Date: 20061124
  Transmission Date: 20070319
  Serious: Yes (Hospitalization)
  Sender: FDA-Public Use
  Company Number: 2006145628

PATIENT
  Age: 20 Year
  Sex: Female
  Weight: 53.4 kg

DRUGS (5)
  1. ZOLOFT [Suspect]
     Indication: SCHIZOPHRENIA
  2. ABILIFY [Suspect]
     Indication: SCHIZOPHRENIA
  3. DIPIPERON (PIPAMPERONE) [Suspect]
  4. HALOPERIDOL [Concomitant]
  5. FOLIC ACID [Concomitant]

REACTIONS (4)
  - CONDITION AGGRAVATED [None]
  - DRUG EXPOSURE DURING PREGNANCY [None]
  - PREGNANCY [None]
  - SCHIZOPHRENIA [None]
